FAERS Safety Report 16025481 (Version 3)
Quarter: 2019Q3

REPORT INFORMATION
  Report Type: Spontaneous
  Country: GB (occurrence: GB)
  Receive Date: 20190302
  Receipt Date: 20190731
  Transmission Date: 20191004
  Serious: Yes (Life-Threatening, Hospitalization, Other)
  Sender: FDA-Public Use
  Company Number: GB-AUROBINDO-AUR-APL-2019-011054

PATIENT

DRUGS (5)
  1. PARACETAMOL [Suspect]
     Active Substance: ACETAMINOPHEN
     Dosage: 65 MILLIGRAM, ONCE A DAY, 65 MG, QD
     Route: 042
  2. MORPHINE [Suspect]
     Active Substance: MORPHINE
     Indication: PAIN
     Dosage: DOSE: PATIENT-CONTROLLED ANALGESIA
     Route: 016
  3. PARACETAMOL [Suspect]
     Active Substance: ACETAMINOPHEN
     Indication: PAIN
     Dosage: 53 MILLIGRAM/KILOGRAM, ONCE A DAY, 53 MG/KG, QD
     Route: 042
  4. DICLOFENAC [Suspect]
     Active Substance: DICLOFENAC
     Indication: PAIN
     Dosage: UNK
     Route: 065
  5. PARACETAMOL [Suspect]
     Active Substance: ACETAMINOPHEN
     Dosage: 50 MILLIGRAM, ONCE A DAY, 50 MG, QD
     Route: 042

REACTIONS (11)
  - Pain [Recovering/Resolving]
  - Lethargy [Unknown]
  - Rectal haemorrhage [Recovering/Resolving]
  - Drug ineffective [Recovered/Resolved]
  - Colitis ulcerative [Recovering/Resolving]
  - Pallor [Recovering/Resolving]
  - Malaise [Unknown]
  - Megacolon [Recovered/Resolved]
  - Hypovolaemia [Not Recovered/Not Resolved]
  - Condition aggravated [Unknown]
  - Abdominal pain [Recovering/Resolving]

NARRATIVE: CASE EVENT DATE: 2007
